FAERS Safety Report 24321021 (Version 1)
Quarter: 2024Q3

REPORT INFORMATION
  Report Type: Report from Study
  Country: CA (occurrence: CA)
  Receive Date: 20240915
  Receipt Date: 20240915
  Transmission Date: 20241016
  Serious: Yes (Hospitalization, Other)
  Sender: NOVARTIS
  Company Number: CA-002147023-NVSC2024CA148802

PATIENT
  Sex: Female

DRUGS (2)
  1. GILENYA [Suspect]
     Active Substance: FINGOLIMOD HYDROCHLORIDE
     Indication: Relapsing-remitting multiple sclerosis
     Dosage: UNK
     Route: 048
     Dates: start: 20170315
  2. GILENYA [Suspect]
     Active Substance: FINGOLIMOD HYDROCHLORIDE
     Dosage: UNK
     Route: 048
     Dates: start: 20240812

REACTIONS (7)
  - Blindness [Unknown]
  - Ill-defined disorder [Unknown]
  - Dizziness [Unknown]
  - Motion sickness [Unknown]
  - Hypotension [Unknown]
  - Product distribution issue [Unknown]
  - Fatigue [Unknown]

NARRATIVE: CASE EVENT DATE: 20240819
